FAERS Safety Report 9306008 (Version 2)
Quarter: 2013Q2

REPORT INFORMATION
  Report Type: Spontaneous
  Country: US (occurrence: US)
  Receive Date: 20130523
  Receipt Date: 20130628
  Transmission Date: 20140414
  Serious: No
  Sender: FDA-Public Use
  Company Number: US-PFIZER INC-2013156930

PATIENT
  Age: 62 Year
  Sex: Female
  Weight: 86.17 kg

DRUGS (9)
  1. EFFEXOR [Suspect]
     Indication: PANIC ATTACK
     Dosage: 225 MG, 1X/DAY
  2. EFFEXOR [Suspect]
     Indication: DEPRESSION
  3. EFFEXOR [Suspect]
     Indication: ANXIETY
  4. METFORMIN [Concomitant]
     Indication: DIABETES MELLITUS
     Dosage: 1000 MG, 2X/DAY
  5. GLIMEPIRIDE [Concomitant]
     Indication: DIABETES MELLITUS
     Dosage: 4 MG, 1X/DAY
  6. CRESTOR [Concomitant]
     Indication: BLOOD CHOLESTEROL INCREASED
     Dosage: 20 MG, 1X/DAY
  7. BUSPIRONE [Concomitant]
     Dosage: 15 MG, 3X/DAY
  8. ASPIRIN [Concomitant]
     Dosage: 81 MG, UNK
  9. VITAMIN D [Concomitant]
     Dosage: 2000 IU, 1X/DAY

REACTIONS (4)
  - Drug ineffective [Unknown]
  - Somnolence [Unknown]
  - Vision blurred [Unknown]
  - Feeling abnormal [Unknown]
